FAERS Safety Report 4302496-2 (Version None)
Quarter: 2004Q1

REPORT INFORMATION
  Report Type: 
  Country: None (occurrence: None)
  Receive Date: 20040220
  Receipt Date: 20040209
  Transmission Date: 20041129
  Serious: Yes (Hospitalization)
  Sender: FDA-Public Use
  Company Number: 04P-163-0249972-00

PATIENT
  Age: 53 Year
  Sex: Female

DRUGS (2)
  1. VICODIN [Suspect]
     Indication: PAIN
     Dates: start: 20030501
  2. LEVOTHYROXINE SODIUM [Concomitant]

REACTIONS (3)
  - DIZZINESS [None]
  - LOSS OF CONSCIOUSNESS [None]
  - RESPIRATORY ARREST [None]
